FAERS Safety Report 4910777-4 (Version None)
Quarter: 2006Q1

REPORT INFORMATION
  Report Type: 
  Country: None (occurrence: None)
  Receive Date: 20060214
  Receipt Date: 20060203
  Transmission Date: 20060701
  Serious: Yes (Other)
  Sender: FDA-Public Use
  Company Number: US-JNJFOC-20060102830

PATIENT
  Sex: Female
  Weight: 81.65 kg

DRUGS (1)
  1. RISPERDAL [Suspect]

REACTIONS (3)
  - BLOOD PROLACTIN INCREASED [None]
  - BRAIN NEOPLASM [None]
  - GALACTORRHOEA [None]
